FAERS Safety Report 7787158-1 (Version None)
Quarter: 2011Q3

REPORT INFORMATION
  Report Type: 
  Country: None (occurrence: None)
  Receive Date: 20110929
  Receipt Date: 20110920
  Transmission Date: 20111222
  Serious: Yes (Other)
  Sender: FDA-Public Use
  Company Number: US-US-EMD SERONO, INC.-7064710

PATIENT
  Sex: Female

DRUGS (2)
  1. REBIF [Suspect]
     Indication: MULTIPLE SCLEROSIS
     Route: 058
     Dates: start: 20041114, end: 20110701
  2. REBIF [Suspect]
     Route: 058

REACTIONS (8)
  - DIARRHOEA [None]
  - INSOMNIA [None]
  - MUSCLE SPASMS [None]
  - ABDOMINAL DISTENSION [None]
  - DEPRESSION [None]
  - SELF-INJURIOUS IDEATION [None]
  - STRESS [None]
  - INFLUENZA LIKE ILLNESS [None]
